FAERS Safety Report 17198584 (Version 1)
Quarter: 2019Q4

REPORT INFORMATION
  Report Type: Spontaneous
  Country: FR (occurrence: FR)
  Receive Date: 20191225
  Receipt Date: 20191225
  Transmission Date: 20200122
  Serious: Yes (Hospitalization)
  Sender: FDA-Public Use
  Company Number: FR-TEVA-2019-FR-1155998

PATIENT
  Age: 76 Year
  Sex: Female

DRUGS (10)
  1. PARACETAMOL [Concomitant]
     Active Substance: ACETAMINOPHEN
  2. BROMAZEPAM [Concomitant]
     Active Substance: BROMAZEPAM
  3. ESCITALOPRAM [Concomitant]
     Active Substance: ESCITALOPRAM OXALATE
  4. ACUPAN [Concomitant]
     Active Substance: NEFOPAM HYDROCHLORIDE
  5. KARDEGIC [Concomitant]
     Active Substance: ASPIRIN DL-LYSINE
  6. LOVENOX [Concomitant]
     Active Substance: ENOXAPARIN SODIUM
  7. METFORMINE [Suspect]
     Active Substance: METFORMIN HYDROCHLORIDE
     Indication: TYPE 2 DIABETES MELLITUS
     Dosage: 2550 MG PER DAY
     Route: 048
     Dates: end: 20191024
  8. PANTOPRAZOLE [Concomitant]
     Active Substance: PANTOPRAZOLE
  9. FLUVASTATINE SODIQUE [Concomitant]
     Active Substance: FLUVASTATIN SODIUM
  10. BIPROFENID LP 100 MG, COMPRIME SECABLE A LIBERATION PROLONGEE [Concomitant]
     Active Substance: KETOPROFEN

REACTIONS (2)
  - Lactic acidosis [Unknown]
  - Drug level increased [Unknown]

NARRATIVE: CASE EVENT DATE: 20191024
